FAERS Safety Report 19797216 (Version 1)
Quarter: 2021Q3

REPORT INFORMATION
  Report Type: Spontaneous
  Country: US (occurrence: US)
  Receive Date: 20210905
  Receipt Date: 20210905
  Transmission Date: 20211014
  Serious: Yes (Life-Threatening)
  Sender: FDA-Public Use
  Company Number: None

PATIENT
  Age: 63 Year
  Sex: Male
  Weight: 88.2 kg

DRUGS (11)
  1. LANTUS [Concomitant]
     Active Substance: INSULIN GLARGINE
  2. KETOROLAC OPHTHALMIC [Concomitant]
  3. XANAX [Concomitant]
     Active Substance: ALPRAZOLAM
  4. ASPIRIN. [Concomitant]
     Active Substance: ASPIRIN
  5. CHLORTHALIDONE. [Concomitant]
     Active Substance: CHLORTHALIDONE
  6. CHOLECALCIFEROL [Concomitant]
     Active Substance: CHOLECALCIFEROL
  7. DOXAZOSIN [Concomitant]
     Active Substance: DOXAZOSIN MESYLATE
  8. JARDIANCE [Suspect]
     Active Substance: EMPAGLIFLOZIN
     Indication: CHRONIC KIDNEY DISEASE
     Route: 048
     Dates: start: 20210722, end: 20210904
  9. CRESTOR [Concomitant]
     Active Substance: ROSUVASTATIN CALCIUM
  10. PREDNISOLONE OPHTHALMIC [Concomitant]
     Active Substance: PREDNISOLONE
  11. HYDRALAZINE [Concomitant]
     Active Substance: HYDRALAZINE HYDROCHLORIDE

REACTIONS (3)
  - Drug monitoring procedure not performed [None]
  - Metabolic acidosis [None]
  - Acute kidney injury [None]

NARRATIVE: CASE EVENT DATE: 20210904
